FAERS Safety Report 10449490 (Version 1)
Quarter: 2014Q3

REPORT INFORMATION
  Report Type: Spontaneous
  Country: US (occurrence: None)
  Receive Date: 20140911
  Receipt Date: 20140911
  Transmission Date: 20150326
  Serious: Yes (Life-Threatening)
  Sender: FDA-Public Use
  Company Number: None

PATIENT

DRUGS (1)
  1. NITROGLYCERIN IV [Suspect]
     Active Substance: NITROGLYCERIN

REACTIONS (5)
  - Device alarm issue [None]
  - Device malfunction [None]
  - Overdose [None]
  - Hypotension [None]
  - Accidental exposure to product [None]

NARRATIVE: CASE EVENT DATE: 20140806
